FAERS Safety Report 6568514-6 (Version None)
Quarter: 2010Q1

REPORT INFORMATION
  Report Type: 
  Country: None (occurrence: None)
  Receive Date: 20100203
  Receipt Date: 20100127
  Transmission Date: 20100710
  Serious: Yes (Death, Life-Threatening, Hospitalization)
  Sender: FDA-Public Use
  Company Number: JP-BRISTOL-MYERS SQUIBB COMPANY-14810964

PATIENT
  Age: 70 Year
  Sex: Female
  Weight: 43 kg

DRUGS (7)
  1. SPRYCEL [Suspect]
     Indication: ACUTE LYMPHOCYTIC LEUKAEMIA
     Route: 048
     Dates: start: 20091002, end: 20091006
  2. IMATINIB MESILATE [Suspect]
     Indication: ACUTE LYMPHOCYTIC LEUKAEMIA
     Dosage: 1 DF = 200-600 MG FORMULATION - TABLET
     Route: 048
     Dates: start: 20070401, end: 20090901
  3. VINCRISTINE SULFATE [Concomitant]
     Indication: ACUTE LYMPHOCYTIC LEUKAEMIA
     Dosage: INJECTION
     Route: 042
     Dates: start: 20091003, end: 20091003
  4. PREDNISOLONE SODIUM SUCCINATE INJ [Concomitant]
     Indication: ACUTE LYMPHOCYTIC LEUKAEMIA
     Dosage: INJECTION;30MG/DAY(07OCT09-09OCT09)
     Route: 042
     Dates: start: 20091002, end: 20091006
  5. GABEXATE MESILATE [Concomitant]
     Dosage: INJECTION
     Route: 042
     Dates: start: 20091004, end: 20091009
  6. OMEPRAZOLE [Concomitant]
     Dosage: INJECTION
     Route: 042
     Dates: start: 20091003, end: 20091009
  7. MICAFUNGIN SODIUM [Concomitant]
     Dosage: INJECTION
     Route: 042
     Dates: start: 20091008, end: 20091009

REACTIONS (7)
  - ANAEMIA [None]
  - DISSEMINATED INTRAVASCULAR COAGULATION [None]
  - GASTROINTESTINAL HAEMORRHAGE [None]
  - NEUTROPHIL COUNT DECREASED [None]
  - PLATELET COUNT DECREASED [None]
  - PNEUMONIA [None]
  - WHITE BLOOD CELL COUNT DECREASED [None]
